FAERS Safety Report 4290609-0 (Version None)
Quarter: 2004Q1

REPORT INFORMATION
  Report Type: 
  Country: None (occurrence: None)
  Receive Date: 20040209
  Receipt Date: 20040126
  Transmission Date: 20041129
  Serious: Yes (Hospitalization)
  Sender: FDA-Public Use
  Company Number: 04P-163-0248306-00

PATIENT
  Age: 87 Year
  Sex: Female
  Weight: 34.0198 kg

DRUGS (11)
  1. HUMIRA [Suspect]
     Indication: RHEUMATOID ARTHRITIS
     Dosage: 40 MG, 1 IN 1 WK, SUBCUTANEOUS
     Route: 058
     Dates: start: 20030807, end: 20040114
  2. HUMIRA [Suspect]
     Indication: RHEUMATOID ARTHRITIS
     Dosage: 40 MG, 1 IN 1 WK, SUBCUTANEOUS
     Route: 058
     Dates: start: 20040115, end: 20040121
  3. HUMIRA [Suspect]
     Indication: RHEUMATOID ARTHRITIS
     Dosage: 40 MG, 1 IN 1 WK, SUBCUTANEOUS
     Route: 058
     Dates: start: 20040128
  4. CLONIDINE [Concomitant]
  5. PREDNISONE [Concomitant]
  6. LEVOTHYROXINE SODIUM [Concomitant]
  7. ENALAPRIL [Concomitant]
  8. FOLIC ACID [Concomitant]
  9. CYANOCOBALAMIN [Concomitant]
  10. FORTEO [Concomitant]
  11. PARACETAMOL [Concomitant]

REACTIONS (5)
  - ASTHENIA [None]
  - DEHYDRATION [None]
  - DRUG INEFFECTIVE [None]
  - GASTROENTERITIS VIRAL [None]
  - VOMITING [None]
